FAERS Safety Report 15975150 (Version 4)
Quarter: 2019Q2

REPORT INFORMATION
  Report Type: Spontaneous
  Country: US (occurrence: US)
  Receive Date: 20190218
  Receipt Date: 20190429
  Transmission Date: 20190711
  Serious: No
  Sender: FDA-Public Use
  Company Number: US-PFIZER INC-2019061953

PATIENT
  Age: 90 Year
  Sex: Female
  Weight: 62 kg

DRUGS (3)
  1. IBRANCE [Suspect]
     Active Substance: PALBOCICLIB
     Dosage: 75 MG, CYCLIC (ONCE A DAY FOR 21 DAYS AND THEN 7 DAYS OFF)
     Route: 048
     Dates: start: 20190110
  2. LETROZOLE. [Concomitant]
     Active Substance: LETROZOLE
     Indication: NEOPLASM MALIGNANT
     Dosage: 2.5 MG, 1X/DAY (ONCE A DAY WITH PALBOCICLIB WITH FOOD)
     Route: 048
     Dates: start: 201811
  3. IBRANCE [Suspect]
     Active Substance: PALBOCICLIB
     Indication: BREAST CANCER METASTATIC
     Dosage: 75 MG, CYCLIC (ONCE A DAY AT DINNER TIME FOR 21 DAYS)
     Route: 048

REACTIONS (4)
  - Cough [Not Recovered/Not Resolved]
  - Breast discomfort [Not Recovered/Not Resolved]
  - Scar [Unknown]
  - Dizziness [Unknown]

NARRATIVE: CASE EVENT DATE: 2019
